FAERS Safety Report 16681599 (Version 1)
Quarter: 2019Q3

REPORT INFORMATION
  Report Type: Spontaneous
  Country: US (occurrence: US)
  Receive Date: 20190808
  Receipt Date: 20190808
  Transmission Date: 20191004
  Serious: No
  Sender: FDA-Public Use
  Company Number: US-UNITED THERAPEUTICS-UNT-2019-013222

PATIENT
  Sex: Female
  Weight: 70.3 kg

DRUGS (1)
  1. REMODULIN [Suspect]
     Active Substance: TREPROSTINIL
     Indication: PULMONARY ARTERIAL HYPERTENSION
     Dosage: 0.050 ?G/KG, CONTINUING
     Route: 058
     Dates: start: 20170815

REACTIONS (5)
  - Exposure via skin contact [Unknown]
  - Rash erythematous [Recovering/Resolving]
  - Pain [Recovering/Resolving]
  - Device dislocation [Unknown]
  - Accidental exposure to product [Unknown]
